FAERS Safety Report 5968334-7 (Version None)
Quarter: 2008Q4

REPORT INFORMATION
  Report Type: 
  Country: None (occurrence: None)
  Receive Date: 20081126
  Receipt Date: 20081118
  Transmission Date: 20090506
  Serious: Yes (Hospitalization)
  Sender: FDA-Public Use
  Company Number: FR-ASTRAZENECA-2008CG01692

PATIENT
  Age: 23701 Day
  Sex: Male

DRUGS (3)
  1. MOPRAL [Suspect]
     Route: 048
     Dates: start: 20080803, end: 20080805
  2. CALCIC HEPARIN [Suspect]
     Dosage: ADMINISTRATION OF EITHER CALCIC OR SODIUM HEPARIN 0.4 ML TWO TIMES A DAY
     Route: 058
     Dates: start: 20080724, end: 20080805
  3. SODIUM HEPARIN [Suspect]
     Dosage: ADMINISTRATION OF EITHER CALCIC OR SODIUM HEPARIN 0.4 ML TWO TIMES A DAY
     Route: 058
     Dates: start: 20080724, end: 20080805

REACTIONS (1)
  - HEPARIN-INDUCED THROMBOCYTOPENIA [None]
